FAERS Safety Report 17070879 (Version 1)
Quarter: 2019Q4

REPORT INFORMATION
  Report Type: Spontaneous
  Country: NZ (occurrence: NZ)
  Receive Date: 20191125
  Receipt Date: 20191125
  Transmission Date: 20200122
  Serious: Yes (Other)
  Sender: FDA-Public Use
  Company Number: NZ-MYLANLABS-2019M1109194

PATIENT
  Sex: Male

DRUGS (1)
  1. VEDAFIL [Suspect]
     Active Substance: SILDENAFIL CITRATE
     Indication: ERECTILE DYSFUNCTION
     Dosage: UNK (FIRSTLY IN HALVES AND THEN IN WHOLES)

REACTIONS (1)
  - Drug ineffective [Unknown]
